FAERS Safety Report 8593374-1 (Version None)
Quarter: 2012Q3

REPORT INFORMATION
  Report Type: 
  Country: None (occurrence: None)
  Receive Date: 20120814
  Receipt Date: 20120808
  Transmission Date: 20120928
  Serious: No
  Sender: FDA-Public Use
  Company Number: US-PFIZER INC-2012194550

PATIENT
  Age: 51 Year
  Sex: Female
  Weight: 70.3 kg

DRUGS (9)
  1. BACLOFEN [Concomitant]
     Indication: BACK PAIN
     Dosage: 2 TABLETS OF 10 MG, DAILY
     Route: 048
  2. TEGRETOL [Concomitant]
     Indication: CONVULSION
     Dosage: 2 TABLETS OF 400 MG,DAILY
     Route: 048
  3. NEXIUM [Concomitant]
     Indication: ULCER
     Dosage: 40 MG, DAILY
  4. AMITRIPTYLINE [Concomitant]
     Indication: BACK PAIN
     Dosage: 25 MG,DAILY AT NIGHT
  5. AMITRIPTYLINE [Concomitant]
     Indication: MIGRAINE
  6. LYRICA [Suspect]
     Indication: CONVULSION
     Dosage: 75 MG, DAILY AT NIGHT
     Route: 048
     Dates: end: 20120701
  7. LYRICA [Suspect]
     Indication: MIGRAINE
  8. LYRICA [Suspect]
     Indication: BACK PAIN
  9. ADVIL PM [Concomitant]
     Indication: BACK PAIN
     Dosage: UNK, DAILY AT NIGHT

REACTIONS (1)
  - FEELING ABNORMAL [None]
